FAERS Safety Report 20345375 (Version 1)
Quarter: 2022Q1

REPORT INFORMATION
  Report Type: Spontaneous
  Country: US (occurrence: None)
  Receive Date: 20220118
  Receipt Date: 20220118
  Transmission Date: 20220423
  Serious: No
  Sender: FDA-Public Use
  Company Number: US-ROCHE-3003327

PATIENT
  Sex: Female
  Weight: 70.307 kg

DRUGS (3)
  1. OCREVUS [Suspect]
     Active Substance: OCRELIZUMAB
     Indication: Multiple sclerosis
     Dosage: OCREVUS 300MG/10ML
     Route: 042
  2. DIPHENHYDRAMINE [Concomitant]
     Active Substance: DIPHENHYDRAMINE
     Dosage: 30 MINUTES PRIOR TO INFUSION/AS NEEDED
     Route: 042
  3. SOLU-MEDROL [Concomitant]
     Active Substance: METHYLPREDNISOLONE SODIUM SUCCINATE
     Dosage: TAKE 30 MINUTES PRIOR TO INFUSION
     Route: 042

REACTIONS (4)
  - COVID-19 [Unknown]
  - Bronchitis [Unknown]
  - Throat irritation [Unknown]
  - Cough [Unknown]
